FAERS Safety Report 5935774-1 (Version None)
Quarter: 2008Q4

REPORT INFORMATION
  Report Type: 
  Country: None (occurrence: None)
  Receive Date: 20081030
  Receipt Date: 20081022
  Transmission Date: 20090506
  Serious: Yes (Other)
  Sender: FDA-Public Use
  Company Number: AU-WATSON-2008-06327

PATIENT
  Age: 31 Year
  Sex: Female

DRUGS (1)
  1. MINOCYCLINE HYDROCHLORIDE (WATSON LABORATORIES) [Suspect]
     Indication: ACNE
     Dosage: 50 MG, BID
     Route: 048

REACTIONS (3)
  - THYROID CANCER [None]
  - THYROID DISORDER [None]
  - THYROIDITIS [None]
